FAERS Safety Report 15330647 (Version 2)
Quarter: 2019Q3

REPORT INFORMATION
  Report Type: Spontaneous
  Country: GR (occurrence: GR)
  Receive Date: 20180829
  Receipt Date: 20190926
  Transmission Date: 20191004
  Serious: Yes (Life-Threatening, Other)
  Sender: FDA-Public Use
  Company Number: GR-MYLANLABS-2018M1063540

PATIENT
  Age: 73 Year
  Sex: Female

DRUGS (13)
  1. OXALIPLATIN. [Suspect]
     Active Substance: OXALIPLATIN
     Indication: PANCREATIC NEOPLASM
     Dosage: UNK
  2. DIAZOXIDE [Suspect]
     Active Substance: DIAZOXIDE
     Indication: PANCREATIC NEOPLASM
     Dosage: UNK
  3. TEMOZOLOMIDE. [Suspect]
     Active Substance: TEMOZOLOMIDE
     Indication: INSULINOMA
     Dosage: UNK UNK, CYCLE
  4. CAPECITABINE MYLAN [Suspect]
     Active Substance: CAPECITABINE
     Indication: PANCREATIC NEOPLASM
     Dosage: UNK
  5. OXALIPLATIN. [Suspect]
     Active Substance: OXALIPLATIN
     Indication: INSULINOMA
     Dosage: UNK
  6. TEMOZOLOMIDE. [Suspect]
     Active Substance: TEMOZOLOMIDE
     Indication: PANCREATIC NEOPLASM
     Dosage: UNK
  7. SOMATOSTATIN [Suspect]
     Active Substance: SOMATOSTATIN
     Indication: INSULINOMA
     Dosage: UNK UNK, CYCLE
  8. 5-FLUOROURACIL                     /00098801/ [Suspect]
     Active Substance: FLUOROURACIL
     Indication: INSULINOMA
     Dosage: UNK
  9. SOMATULINE                         /01330101/ [Suspect]
     Active Substance: LANREOTIDE ACETATE
     Indication: PANCREATIC NEOPLASM
     Dosage: UNK
  10. CAPECITABINE MYLAN [Suspect]
     Active Substance: CAPECITABINE
     Indication: INSULINOMA
     Dosage: UNK UNK, CYCLE
  11. 5-FLUOROURACIL                     /00098801/ [Suspect]
     Active Substance: FLUOROURACIL
     Indication: PANCREATIC NEOPLASM
     Dosage: UNK
  12. DIAZOXIDE [Suspect]
     Active Substance: DIAZOXIDE
     Indication: INSULINOMA
     Dosage: UNK
  13. EVEROLIMUS. [Concomitant]
     Active Substance: EVEROLIMUS
     Indication: PRODUCT USED FOR UNKNOWN INDICATION
     Dosage: 10 MILLIGRAM, QD
     Route: 065

REACTIONS (6)
  - Product use in unapproved indication [Unknown]
  - Condition aggravated [Recovering/Resolving]
  - Hypoglycaemia [Recovered/Resolved]
  - Insulinoma [Recovering/Resolving]
  - Malignant neoplasm progression [Recovering/Resolving]
  - Drug ineffective [Unknown]
